FAERS Safety Report 6375375-7 (Version None)
Quarter: 2009Q3

REPORT INFORMATION
  Report Type: 
  Country: None (occurrence: None)
  Receive Date: 20090924
  Receipt Date: 20090914
  Transmission Date: 20100115
  Serious: Yes (Hospitalization)
  Sender: FDA-Public Use
  Company Number: PHHY2009GB36122

PATIENT
  Sex: Male

DRUGS (6)
  1. CLOZARIL [Suspect]
     Indication: SCHIZOPHRENIA
     Dosage: UNK
     Dates: start: 20080402
  2. CLOZARIL [Suspect]
     Dosage: 300 MG
     Route: 048
     Dates: start: 20080402
  3. CITALOPRAM HYDROBROMIDE [Concomitant]
  4. LORAZEPAM [Concomitant]
  5. HYOSCINE [Concomitant]
  6. LANSOPRAZOLE [Concomitant]

REACTIONS (6)
  - CELLULITIS [None]
  - NEUTROPHIL COUNT INCREASED [None]
  - PLATELET COUNT INCREASED [None]
  - RENAL FAILURE [None]
  - SEPSIS [None]
  - WHITE BLOOD CELL COUNT INCREASED [None]
